FAERS Safety Report 6207816-X (Version None)
Quarter: 2009Q2

REPORT INFORMATION
  Report Type: 
  Country: None (occurrence: None)
  Receive Date: 20090528
  Receipt Date: 20090522
  Transmission Date: 20091009
  Serious: No
  Sender: FDA-Public Use
  Company Number: US-ELI_LILLY_AND_COMPANY-US200904007007

PATIENT
  Sex: Female
  Weight: 107.3 kg

DRUGS (1)
  1. FORTEO [Suspect]
     Dates: start: 20080101, end: 20090201

REACTIONS (2)
  - ANXIETY [None]
  - OXYGEN SATURATION DECREASED [None]
